FAERS Safety Report 9852808 (Version 1)
Quarter: 2014Q1

REPORT INFORMATION
  Report Type: Spontaneous
  Country: US (occurrence: None)
  Receive Date: 20140128
  Receipt Date: 20140128
  Transmission Date: 20141002
  Serious: Yes (Hospitalization)
  Sender: FDA-Public Use
  Company Number: None

PATIENT
  Age: 74 Year
  Sex: Male
  Weight: 78.93 kg

DRUGS (1)
  1. ABRAXANE [Suspect]

REACTIONS (2)
  - Abdominal pain [None]
  - Large intestinal obstruction [None]
